FAERS Safety Report 10384333 (Version 1)
Quarter: 2014Q3

REPORT INFORMATION
  Report Type: Spontaneous
  Country: US (occurrence: None)
  Receive Date: 20140812
  Receipt Date: 20140812
  Transmission Date: 20150326
  Serious: Yes (Hospitalization, Other)
  Sender: FDA-Public Use
  Company Number: 2014PRN00017

PATIENT
  Age: 78 Year
  Sex: Male

DRUGS (6)
  1. TRAZODONE [Concomitant]
     Active Substance: TRAZODONE HYDROCHLORIDE
  2. METOPROLOL XL [Concomitant]
     Active Substance: METOPROLOL
  3. DONEPEZIL TABLET 5MG [Suspect]
     Active Substance: DONEPEZIL
  4. CARBIDOPA-LEVADOPA [Concomitant]
  5. RIVASTIGMINE [Suspect]
     Active Substance: RIVASTIGMINE
  6. WARFARIN [Concomitant]
     Active Substance: WARFARIN

REACTIONS (4)
  - Encephalopathy [None]
  - Sinus bradycardia [None]
  - Blood cholinesterase decreased [None]
  - Toxicity to various agents [None]
